FAERS Safety Report 21685470 (Version 1)
Quarter: 2022Q4

REPORT INFORMATION
  Report Type: Report from Study
  Country: US (occurrence: US)
  Receive Date: 20221206
  Receipt Date: 20221206
  Transmission Date: 20230112
  Serious: No
  Sender: FDA-Public Use
  Company Number: US-ABBVIE-4195506

PATIENT
  Age: 61 Year
  Sex: Male

DRUGS (18)
  1. SKYRIZI [Suspect]
     Active Substance: RISANKIZUMAB-RZAA
     Indication: Psoriasis
     Route: 058
     Dates: start: 20211112
  2. GLIPIZIDE [Concomitant]
     Active Substance: GLIPIZIDE
     Indication: Product used for unknown indication
  3. ALLOPURINOL TAB 300MG [Concomitant]
     Indication: Product used for unknown indication
  4. POTASSIUM CRY METABISU [Concomitant]
     Indication: Product used for unknown indication
  5. VITAMIN D3 CAP US 5000U [Concomitant]
     Indication: Product used for unknown indication
  6. BASAGLAR INJ 100UNIT [Concomitant]
     Indication: Product used for unknown indication
  7. CETIRIZINE TAB 10MG [Concomitant]
     Indication: Product used for unknown indication
  8. GABAPENTIN [Concomitant]
     Active Substance: GABAPENTIN
     Indication: Product used for unknown indication
  9. FUROSEMIDE TAB 40MG [Concomitant]
     Indication: Product used for unknown indication
  10. OMEPRAZOLE [Concomitant]
     Active Substance: OMEPRAZOLE
     Indication: Product used for unknown indication
  11. LOSARTAN POT TAB 100MG [Concomitant]
     Indication: Product used for unknown indication
  12. KRILL OIL CAP 500MG [Concomitant]
     Indication: Product used for unknown indication
  13. METFORMIN [Concomitant]
     Active Substance: METFORMIN HYDROCHLORIDE
     Indication: Product used for unknown indication
  14. POT CHLORIDE TAB 8MEQ ER [Concomitant]
     Indication: Product used for unknown indication
  15. PRAVASTATIN TAB 40MG [Concomitant]
     Indication: Product used for unknown indication
  16. AZITHROMYCIN TAB 250MG [Concomitant]
     Indication: Product used for unknown indication
  17. NABUMETONE TAB 750MG [Concomitant]
     Indication: Product used for unknown indication
  18. VIRTUSSIN AC LIQ 100-10/5 [Concomitant]
     Indication: Product used for unknown indication

REACTIONS (5)
  - Dyspnoea [Unknown]
  - Nausea [Unknown]
  - Malaise [Unknown]
  - Vomiting [Unknown]
  - Drug ineffective [Unknown]

NARRATIVE: CASE EVENT DATE: 20221109
